FAERS Safety Report 9291286 (Version 3)
Quarter: 2013Q4

REPORT INFORMATION
  Report Type: Spontaneous
  Country: US (occurrence: US)
  Receive Date: 20130515
  Receipt Date: 20131127
  Transmission Date: 20140711
  Serious: Yes (Hospitalization)
  Sender: FDA-Public Use
  Company Number: US-B.I. PHARMACEUTICALS,INC./RIDGEFIELD-2013-BI-13318BP

PATIENT
  Age: 71 Year
  Sex: Male
  Weight: 68 kg

DRUGS (13)
  1. PRADAXA [Suspect]
     Indication: ANTICOAGULANT THERAPY
     Dosage: 300 MG
     Route: 048
     Dates: start: 20120425, end: 20121113
  2. PRADAXA [Suspect]
     Indication: ATRIAL FIBRILLATION
  3. CLONIDINE [Concomitant]
     Dosage: 0.4 MG
     Route: 048
  4. SIMVASTATIN [Concomitant]
     Indication: HYPERLIPIDAEMIA
     Dosage: 40 MG
     Route: 048
  5. SIMVASTATIN [Concomitant]
     Indication: ISCHAEMIC CARDIOMYOPATHY
  6. GLEEVEC [Concomitant]
     Indication: CHRONIC MYELOID LEUKAEMIA
     Dosage: 40 MG
     Route: 048
  7. METOPROLOL [Concomitant]
     Indication: ISCHAEMIC CARDIOMYOPATHY
     Dosage: 100 MG
     Route: 048
  8. FUROSEMIDE [Concomitant]
     Indication: ISCHAEMIC CARDIOMYOPATHY
     Dosage: 80 MG
  9. QUINAPRIL [Concomitant]
     Indication: ISCHAEMIC CARDIOMYOPATHY
     Dosage: 40 MG
     Route: 048
  10. DIGOXIN [Concomitant]
     Indication: ISCHAEMIC CARDIOMYOPATHY
     Dosage: 0.125 MG
     Route: 048
  11. NIASPAN ER [Concomitant]
     Indication: DYSLIPIDAEMIA
     Dosage: 500 MG
     Route: 048
  12. VITAMIN D3 [Concomitant]
     Dosage: 1000 MG
     Route: 048
  13. POTASSIUM [Concomitant]
     Dosage: 20 MEQ
     Route: 048

REACTIONS (1)
  - Retroperitoneal haematoma [Not Recovered/Not Resolved]
